FAERS Safety Report 8917258 (Version 2)
Quarter: 2012Q4

REPORT INFORMATION
  Report Type: Report from Study
  Country: JP (occurrence: JP)
  Receive Date: 20121120
  Receipt Date: 20121129
  Transmission Date: 20130627
  Serious: Yes (Other)
  Sender: FDA-Public Use
  Company Number: JP-VERTEX PHARMACEUTICAL INC.-AE-2012-009979

PATIENT
  Age: 42 Year
  Sex: Female

DRUGS (8)
  1. VX-950 (TELAPREVIR) [Suspect]
     Indication: CHRONIC HEPATITIS C
     Dosage: 1500 mg, qd
     Route: 048
     Dates: start: 20120507, end: 20120801
  2. REBETOL [Suspect]
     Indication: CHRONIC HEPATITIS C
     Dosage: 400 mg, qd
     Route: 048
     Dates: start: 20120507, end: 20120524
  3. REBETOL [Suspect]
     Dosage: 200 mg, qd
     Route: 048
     Dates: start: 20120525, end: 20120919
  4. REBETOL [Suspect]
     Dosage: 400 mg, qd
     Route: 048
     Dates: start: 20120920, end: 20121024
  5. PEGINTERFERON ALFA-2B [Suspect]
     Indication: CHRONIC HEPATITIS C
     Dosage: 1.5 ?g/kg, qw
     Route: 058
     Dates: start: 20120507, end: 20120514
  6. PEGINTERFERON ALFA-2B [Suspect]
     Dosage: 0.75 ?g/kg, qw
     Route: 058
     Dates: start: 20120521, end: 20121017
  7. URSODEOXYCHOLIC ACID [Concomitant]
     Dosage: 900 mg, qd
     Route: 048
     Dates: end: 20120704
  8. THYRADIN S [Concomitant]
     Dosage: 50 ?g, qd
     Route: 048

REACTIONS (2)
  - Neutrophil count decreased [Recovered/Resolved]
  - Neutrophil count decreased [Not Recovered/Not Resolved]
